FAERS Safety Report 6370451-7 (Version None)
Quarter: 2009Q3

REPORT INFORMATION
  Report Type: 
  Country: None (occurrence: None)
  Receive Date: 20090921
  Receipt Date: 20090921
  Transmission Date: 20100115
  Serious: No
  Sender: FDA-Public Use
  Company Number: None

PATIENT
  Age: 47 Year
  Sex: Female
  Weight: 68.2 kg

DRUGS (1)
  1. FLUTICASONE PROPIONATE [Suspect]
     Indication: SEASONAL ALLERGY
     Dosage: 1-2 SPRAYS IN NOSTRIL ONCE PER DAYA
     Dates: start: 20090912

REACTIONS (6)
  - FACIAL PALSY [None]
  - HYPOAESTHESIA [None]
  - LIP SWELLING [None]
  - NASAL OEDEMA [None]
  - PARAESTHESIA [None]
  - SWELLING FACE [None]
